FAERS Safety Report 7463456-6 (Version None)
Quarter: 2011Q2

REPORT INFORMATION
  Report Type: 
  Country: None (occurrence: None)
  Receive Date: 20110506
  Receipt Date: 20110502
  Transmission Date: 20111010
  Serious: Yes (Hospitalization)
  Sender: FDA-Public Use
  Company Number: Z0003800A

PATIENT
  Sex: Female
  Weight: 68 kg

DRUGS (2)
  1. PAZOPANIB [Suspect]
     Indication: OVARIAN CANCER
     Dosage: 800MG PER DAY
     Route: 048
     Dates: start: 20100322, end: 20100403
  2. IBUPROFEN [Concomitant]
     Route: 042

REACTIONS (8)
  - DRUG ERUPTION [None]
  - THROMBOCYTOPENIA [None]
  - PYREXIA [None]
  - TRANSAMINASES INCREASED [None]
  - DIARRHOEA [None]
  - NAUSEA [None]
  - DEHYDRATION [None]
  - VOMITING [None]
